FAERS Safety Report 14491193 (Version 2)
Quarter: 2018Q4

REPORT INFORMATION
  Report Type: Report from Study
  Country: JP (occurrence: JP)
  Receive Date: 20180206
  Receipt Date: 20181109
  Transmission Date: 20190204
  Serious: Yes (Congenital Anomaly, Other)
  Sender: FDA-Public Use
  Company Number: JP-ASTELLAS-2017JP000169

PATIENT
  Age: 7 Day
  Sex: Male
  Weight: 1.9 kg

DRUGS (16)
  1. TACROLIMUS. [Suspect]
     Active Substance: TACROLIMUS
     Indication: EXPOSURE VIA BREAST MILK
     Route: 063
     Dates: start: 20160813
  2. GASTER [Suspect]
     Active Substance: FAMOTIDINE
     Indication: EXPOSURE VIA BREAST MILK
     Route: 063
     Dates: start: 20160813
  3. PREDNISOLONE. [Concomitant]
     Active Substance: PREDNISOLONE
     Route: 063
     Dates: start: 20160909, end: 20161010
  4. BAYASPIRIN [Concomitant]
     Active Substance: ASPIRIN
     Indication: EXPOSURE VIA BREAST MILK
     Route: 063
     Dates: start: 20160813
  5. PREDNISOLONE. [Concomitant]
     Active Substance: PREDNISOLONE
     Indication: FOETAL EXPOSURE DURING PREGNANCY
     Route: 064
     Dates: start: 2015, end: 20160806
  6. PREDNISOLONE. [Concomitant]
     Active Substance: PREDNISOLONE
     Route: 063
     Dates: start: 20161011
  7. PREDNISOLONE. [Concomitant]
     Active Substance: PREDNISOLONE
     Indication: EXPOSURE VIA BREAST MILK
     Route: 063
     Dates: start: 20160813, end: 20160908
  8. BREDININ [Concomitant]
     Active Substance: MIZORIBINE
     Indication: FOETAL EXPOSURE DURING PREGNANCY
     Route: 064
     Dates: start: 2015, end: 20160806
  9. EDIROL [Concomitant]
     Active Substance: ELDECALCITOL
     Indication: FOETAL EXPOSURE DURING PREGNANCY
     Dosage: 0.75 ?G, ONCE DAILY
     Route: 064
     Dates: start: 2015, end: 20160806
  10. GASTER [Suspect]
     Active Substance: FAMOTIDINE
     Indication: FOETAL EXPOSURE DURING PREGNANCY
     Route: 064
     Dates: start: 2015, end: 20160806
  11. BAYASPIRIN [Concomitant]
     Active Substance: ASPIRIN
     Indication: FOETAL EXPOSURE DURING PREGNANCY
     Route: 064
     Dates: start: 20160215, end: 20160806
  12. ALDOMET [Concomitant]
     Active Substance: METHYLDOPA
     Indication: EXPOSURE VIA BREAST MILK
     Dosage: UNK UNK, UNKNOWN FREQ.
     Route: 063
     Dates: start: 20160813
  13. BREDININ [Concomitant]
     Active Substance: MIZORIBINE
     Indication: EXPOSURE VIA BREAST MILK
     Route: 063
     Dates: start: 20160813
  14. EDIROL [Concomitant]
     Active Substance: ELDECALCITOL
     Indication: EXPOSURE VIA BREAST MILK
     Dosage: 0.75 ?G, ONCE DAILY
     Route: 063
     Dates: start: 20160813
  15. ALDOMET [Concomitant]
     Active Substance: METHYLDOPA
     Indication: FOETAL EXPOSURE DURING PREGNANCY
     Dosage: UNK UNK, UNKNOWN FREQ.
     Route: 064
     Dates: end: 20160806
  16. TACROLIMUS. [Suspect]
     Active Substance: TACROLIMUS
     Indication: FOETAL EXPOSURE DURING PREGNANCY
     Route: 064
     Dates: start: 2015, end: 20160806

REACTIONS (3)
  - Respiratory disorder neonatal [Unknown]
  - Low birth weight baby [Unknown]
  - Exposure via breast milk [Unknown]

NARRATIVE: CASE EVENT DATE: 20160813
